FAERS Safety Report 24739606 (Version 3)
Quarter: 2025Q1

REPORT INFORMATION
  Report Type: Spontaneous
  Country: US (occurrence: US)
  Receive Date: 20241216
  Receipt Date: 20250316
  Transmission Date: 20250408
  Serious: No
  Sender: SANOFI AVENTIS
  Company Number: US-SA-2024SA369159

PATIENT
  Age: 59 Year
  Sex: Female
  Weight: 116.1 kg

DRUGS (63)
  1. DUPIXENT [Suspect]
     Active Substance: DUPILUMAB
     Indication: Dermatitis atopic
     Dosage: 300 MG, QOW
     Route: 058
  2. VITAMINS NOS [Concomitant]
     Active Substance: VITAMINS
  3. BREO ELLIPTA [Concomitant]
     Active Substance: FLUTICASONE FUROATE\VILANTEROL TRIFENATATE
  4. ACID REDUCER [RANITIDINE HYDROCHLORIDE] [Concomitant]
  5. ALBUTEROL SULFATE [Concomitant]
     Active Substance: ALBUTEROL SULFATE
  6. ALLERGY RELIEF [CETIRIZINE HYDROCHLORIDE] [Concomitant]
  7. AUGMENTIN [Concomitant]
     Active Substance: AMOXICILLIN\CLAVULANATE POTASSIUM
  8. B COMPLEX + VITAMIN C [Concomitant]
  9. CHLORHEXIDINE GLUCONATE [Concomitant]
     Active Substance: CHLORHEXIDINE GLUCONATE
  10. CLARITIN-D NOS [Concomitant]
     Active Substance: LORATADINE\PSEUDOEPHEDRINE SULFATE
  11. COMBIVENT RESPIMAT [Concomitant]
     Active Substance: ALBUTEROL SULFATE\IPRATROPIUM BROMIDE
  12. CUTAQUIG [Concomitant]
     Active Substance: HUMAN IMMUNOGLOBULIN G
  13. DAILY VITE [COLECALCIFEROL;CYANOCOBALAMIN;ERGOCALCIFEROL;NICOTINAMIDE; [Concomitant]
  14. DICLOFENAC SODIUM [Concomitant]
     Active Substance: DICLOFENAC SODIUM
  15. EPINEPHRINE [Concomitant]
     Active Substance: EPINEPHRINE
  16. FUROSEMIDE [Concomitant]
     Active Substance: FUROSEMIDE
  17. GAMMAGARD LIQUID [Concomitant]
     Active Substance: HUMAN IMMUNOGLOBULIN G
  18. HYDROCHLOROTHIAZIDE [Concomitant]
     Active Substance: HYDROCHLOROTHIAZIDE
  19. HYDROXYCHLOROQUINE SULFATE [Concomitant]
     Active Substance: HYDROXYCHLOROQUINE SULFATE
  20. IMITREX [Concomitant]
     Active Substance: SUMATRIPTAN SUCCINATE
  21. LEVALBUTEROL HYDROCHLORIDE [Concomitant]
     Active Substance: LEVALBUTEROL HYDROCHLORIDE
  22. LIDOCAINE HYDROCHLORIDE [Concomitant]
     Active Substance: LIDOCAINE HYDROCHLORIDE
  23. MELOXICAM [Concomitant]
     Active Substance: MELOXICAM
  24. METFORMIN HYDROCHLORIDE [Concomitant]
     Active Substance: METFORMIN HYDROCHLORIDE
  25. MIRAPEX [Concomitant]
     Active Substance: PRAMIPEXOLE DIHYDROCHLORIDE
  26. NEUPRO [Concomitant]
     Active Substance: ROTIGOTINE
  27. OMEPRAZOLE [Concomitant]
     Active Substance: OMEPRAZOLE
  28. PROMETHAZINE HYDROCHLORIDE [Concomitant]
     Active Substance: PROMETHAZINE HYDROCHLORIDE
  29. OMEPRAZOLE [Concomitant]
     Active Substance: OMEPRAZOLE
  30. QUETIAPINE FUMARATE [Concomitant]
     Active Substance: QUETIAPINE FUMARATE
  31. RAMIPRIL [Concomitant]
     Active Substance: RAMIPRIL
  32. SINGULAIR [Concomitant]
     Active Substance: MONTELUKAST SODIUM
  33. SYNTHROID [Concomitant]
     Active Substance: LEVOTHYROXINE SODIUM
  34. TIZANIDINE HYDROCHLORIDE [Concomitant]
     Active Substance: TIZANIDINE HYDROCHLORIDE
  35. TRAMADOL HCL [Concomitant]
     Active Substance: TRAMADOL HYDROCHLORIDE
  36. VITAMIN D2 [Concomitant]
     Active Substance: ERGOCALCIFEROL
  37. VITAMIN K1 [Concomitant]
     Active Substance: PHYTONADIONE
  38. VOLTAREN ARTHRITIS PAIN [Concomitant]
     Active Substance: DICLOFENAC SODIUM
  39. WARFARIN SODIUM [Concomitant]
     Active Substance: WARFARIN SODIUM
  40. ZOLPIDEM TARTRATE [Concomitant]
     Active Substance: ZOLPIDEM TARTRATE
  41. LIDOCAINE\PRILOCAINE [Concomitant]
     Active Substance: LIDOCAINE\PRILOCAINE
  42. LASIX [Concomitant]
     Active Substance: FUROSEMIDE
  43. AMOXICILLIN AND CLAVULANATE POTASSIUM [AMOXICILLIN TRIHYDRATE;CLAVULAN [Concomitant]
  44. PANTOPRAZOLE SODIUM [Concomitant]
     Active Substance: PANTOPRAZOLE SODIUM
  45. CYANOCOBALAMIN [Concomitant]
     Active Substance: CYANOCOBALAMIN
  46. CODEINE PHOSPHATE\PROMETHAZINE HYDROCHLORIDE [Concomitant]
     Active Substance: CODEINE PHOSPHATE\PROMETHAZINE HYDROCHLORIDE
  47. XEMBIFY [Concomitant]
     Active Substance: HUMAN IMMUNOGLOBULIN G
  48. LEVETIRACETAM [Concomitant]
     Active Substance: LEVETIRACETAM
  49. ACETAMINOPHEN [Concomitant]
     Active Substance: ACETAMINOPHEN
  50. OXYCODONE HYDROCHLORIDE [Concomitant]
     Active Substance: OXYCODONE HYDROCHLORIDE
  51. VITAMIN B12 [Concomitant]
     Active Substance: CYANOCOBALAMIN
  52. LIPITOR [Concomitant]
     Active Substance: ATORVASTATIN CALCIUM
  53. DIPHENHYDRAMINE HYDROCHLORIDE [Concomitant]
     Active Substance: DIPHENHYDRAMINE HYDROCHLORIDE
  54. BUSPIRONE HCL [Concomitant]
     Active Substance: BUSPIRONE HYDROCHLORIDE
  55. POTASSIUM CHLORIDE [Concomitant]
     Active Substance: POTASSIUM CHLORIDE
  56. PRAMIPEXOLE DIHYDROCHLORIDE [Concomitant]
     Active Substance: PRAMIPEXOLE DIHYDROCHLORIDE
  57. CUVITRU [Concomitant]
     Active Substance: HUMAN IMMUNOGLOBULIN G
  58. ACETAMINOPHEN\TRAMADOL HYDROCHLORIDE [Concomitant]
     Active Substance: ACETAMINOPHEN\TRAMADOL HYDROCHLORIDE
  59. OZEMPIC [Concomitant]
     Active Substance: SEMAGLUTIDE
  60. SPIRIVA RESPIMAT [Concomitant]
     Active Substance: TIOTROPIUM BROMIDE
     Route: 055
  61. FAMOTIDINE [Concomitant]
     Active Substance: FAMOTIDINE
  62. FLUTICASONE PROPIONATE [Concomitant]
     Active Substance: FLUTICASONE PROPIONATE
  63. ATORVASTATIN CALCIUM [Concomitant]
     Active Substance: ATORVASTATIN CALCIUM

REACTIONS (4)
  - Influenza [Unknown]
  - Respiratory tract infection [Unknown]
  - Sinusitis [Unknown]
  - Eye operation [Unknown]

NARRATIVE: CASE EVENT DATE: 20240101
